FAERS Safety Report 13575873 (Version 1)
Quarter: 2017Q2

REPORT INFORMATION
  Report Type: Spontaneous
  Country: US (occurrence: US)
  Receive Date: 20170523
  Receipt Date: 20170523
  Transmission Date: 20170830
  Serious: Yes (Other)
  Sender: FDA-Public Use
  Company Number: None

PATIENT
  Age: 64 Year
  Sex: Female
  Weight: 36.9 kg

DRUGS (21)
  1. DILTIAZEM ER [Concomitant]
     Active Substance: DILTIAZEM
  2. FLUOCIN ACET OT [Concomitant]
  3. RECLAST [Concomitant]
     Active Substance: ZOLEDRONIC ACID
  4. AMBIEN ER [Concomitant]
  5. AZELASTINE HCI [Concomitant]
  6. XOLAIR [Suspect]
     Active Substance: OMALIZUMAB
     Indication: IMMUNODEFICIENCY
     Dosage: SUBCUTANEOUS ONE INJECTION A MO?
     Route: 058
     Dates: start: 20160327, end: 20160327
  7. ALPRAZOLAM. [Concomitant]
     Active Substance: ALPRAZOLAM
  8. IMITREX [Concomitant]
     Active Substance: SUMATRIPTAN SUCCINATE
  9. POLETH GLYCOL POWDER [Concomitant]
  10. EFFEXOR XR [Concomitant]
     Active Substance: VENLAFAXINE HYDROCHLORIDE
  11. AZITHROMYCIN ANHYDROUS. [Concomitant]
     Active Substance: AZITHROMYCIN ANHYDROUS
  12. MELATONIN [Concomitant]
     Active Substance: MELATONIN
  13. SENNOSIDE [Concomitant]
     Active Substance: SENNOSIDES
  14. AMITIZA [Concomitant]
     Active Substance: LUBIPROSTONE
  15. TRAMADOL. [Concomitant]
     Active Substance: TRAMADOL
  16. SEMPREX D [Concomitant]
     Active Substance: ACRIVASTINE\PSEUDOEPHEDRINE HYDROCHLORIDE
  17. DYMISTA [Concomitant]
     Active Substance: AZELASTINE HYDROCHLORIDE\FLUTICASONE PROPIONATE
  18. SPRAY MULTI-VITAMIN [Concomitant]
  19. DICYCLOMINE [Concomitant]
     Active Substance: DICYCLOMINE HYDROCHLORIDE
  20. PANTOPRAZOLE [Concomitant]
     Active Substance: PANTOPRAZOLE
  21. STOOL SOFTNERS [Concomitant]

REACTIONS (7)
  - Muscular weakness [None]
  - Anxiety [None]
  - Depression [None]
  - Personality change [None]
  - Bedridden [None]
  - Quality of life decreased [None]
  - Impaired driving ability [None]

NARRATIVE: CASE EVENT DATE: 20160327
